FAERS Safety Report 13030827 (Version 1)
Quarter: 2016Q4

REPORT INFORMATION
  Report Type: Spontaneous
  Country: NL (occurrence: NL)
  Receive Date: 20161215
  Receipt Date: 20161215
  Transmission Date: 20170207
  Serious: Yes (Life-Threatening, Hospitalization)
  Sender: FDA-Public Use
  Company Number: NL-BION-005793

PATIENT
  Age: 12 Day
  Sex: Male
  Weight: 3.7 kg

DRUGS (2)
  1. LIDOCAINE UNKNOWN PRODUCT [Suspect]
     Active Substance: LIDOCAINE
     Indication: LOCAL ANAESTHESIA
     Dosage: INFILTRATION WITH 6 ML LIDOCAINE 1 %, LOCAL USE OF LIDOCAINE
  2. EMLA [Suspect]
     Active Substance: LIDOCAINE\PRILOCAINE
     Indication: LOCAL ANAESTHESIA
     Dosage: 2.5 % PRILOCAINE/2.5 % LIDOCAINE
     Route: 061

REACTIONS (2)
  - Methaemoglobinaemia [Recovered/Resolved]
  - Lactic acidosis [Recovered/Resolved]
